FAERS Safety Report 14204978 (Version 1)
Quarter: 2017Q4

REPORT INFORMATION
  Report Type: Spontaneous
  Country: US (occurrence: US)
  Receive Date: 20171119
  Receipt Date: 20171119
  Transmission Date: 20180321
  Serious: Yes (Hospitalization)
  Sender: FDA-Public Use
  Company Number: None

PATIENT
  Age: 62 Year
  Sex: Male
  Weight: 76.95 kg

DRUGS (6)
  1. ASPIRIN. [Concomitant]
     Active Substance: ASPIRIN
  2. VITAMIN B [Concomitant]
     Active Substance: VITAMIN B
  3. MIRCERA [Suspect]
     Active Substance: METHOXY POLYETHYLENE GLYCOL-EPOETIN BETA
     Indication: HAEMOGLOBIN DECREASED
     Dates: start: 20171102
  4. COREG [Concomitant]
     Active Substance: CARVEDILOL
  5. BRILINTA [Concomitant]
     Active Substance: TICAGRELOR
  6. STENT [Concomitant]

REACTIONS (4)
  - Pulmonary oedema [None]
  - Heart rate increased [None]
  - Dyspnoea [None]
  - Cardiac failure [None]

NARRATIVE: CASE EVENT DATE: 20171102
